FAERS Safety Report 25588101 (Version 1)
Quarter: 2025Q3

REPORT INFORMATION
  Report Type: Spontaneous
  Country: AU (occurrence: AU)
  Receive Date: 20250722
  Receipt Date: 20250722
  Transmission Date: 20251021
  Serious: Yes (Other)
  Sender: ABBVIE
  Company Number: AU-ABBVIE-6376333

PATIENT
  Age: 47 Year

DRUGS (1)
  1. SEVOFLURANE [Suspect]
     Active Substance: SEVOFLURANE
     Indication: Mammoplasty
     Route: 065
     Dates: start: 2017

REACTIONS (13)
  - Hyperthermia malignant [Unknown]
  - Rhabdomyolysis [Unknown]
  - Vascular insufficiency [Unknown]
  - Troponin increased [Unknown]
  - C-reactive protein increased [Unknown]
  - Blood fibrinogen increased [Unknown]
  - Fibrin D dimer increased [Unknown]
  - Chromaturia [Unknown]
  - Pneumothorax [Unknown]
  - Subcutaneous emphysema [Unknown]
  - Atelectasis [Unknown]
  - Hepatic enzyme increased [Unknown]
  - Air embolism [Unknown]

NARRATIVE: CASE EVENT DATE: 20170120
